FAERS Safety Report 24987330 (Version 1)
Quarter: 2025Q1

REPORT INFORMATION
  Report Type: Spontaneous
  Country: US (occurrence: US)
  Receive Date: 20250219
  Receipt Date: 20250219
  Transmission Date: 20250408
  Serious: No
  Sender: PFIZER
  Company Number: US-PFIZER INC-202500035967

PATIENT
  Age: 71 Year
  Sex: Male

DRUGS (1)
  1. INLYTA [Suspect]
     Active Substance: AXITINIB
     Dosage: 5 MG, 2X/DAY (1 TABLET (5 MG) BY MOUTH TWICE DAILY ON DAYS 1 THROUGH 28 OF A 28 DAY CYCLE)
     Route: 048
     Dates: start: 20250208

REACTIONS (2)
  - Fatigue [Unknown]
  - Headache [Unknown]
